FAERS Safety Report 16084189 (Version 1)
Quarter: 2019Q1

REPORT INFORMATION
  Report Type: Spontaneous
  Country: US (occurrence: US)
  Receive Date: 20190318
  Receipt Date: 20190318
  Transmission Date: 20190418
  Serious: No
  Sender: FDA-Public Use
  Company Number: US-PFIZER INC-2019111151

PATIENT
  Age: 54 Year
  Sex: Female
  Weight: 90.72 kg

DRUGS (1)
  1. GENOTROPIN [Suspect]
     Active Substance: SOMATROPIN
     Indication: DWARFISM
     Dosage: 0.4MG INJECTION SUNDAY, MONDAY, TUESDAY, WEDNESDAY, AND THURSDAY

REACTIONS (2)
  - Drug level increased [Unknown]
  - Hypertension [Unknown]

NARRATIVE: CASE EVENT DATE: 201811
